FAERS Safety Report 25565066 (Version 1)
Quarter: 2025Q3

REPORT INFORMATION
  Report Type: Spontaneous
  Country: US (occurrence: US)
  Receive Date: 20250716
  Receipt Date: 20250716
  Transmission Date: 20251021
  Serious: Yes (Other)
  Sender: COOPERSURGICAL
  Company Number: US-COOPERSURGICAL, INC.-2025CPS005449

PATIENT
  Age: 35 Year
  Sex: Female
  Weight: 80.726 kg

DRUGS (1)
  1. PARAGARD T 380A [Suspect]
     Active Substance: COPPER
     Route: 015
     Dates: start: 20101201, end: 20191108

REACTIONS (10)
  - Surgery [Recovered/Resolved]
  - Complication of device removal [Recovered/Resolved]
  - Malaise [Unknown]
  - Emotional distress [Unknown]
  - Fear [Not Recovered/Not Resolved]
  - Device issue [Recovered/Resolved]
  - Procedural pain [Recovered/Resolved]
  - Pain [Not Recovered/Not Resolved]
  - Muscle spasms [Not Recovered/Not Resolved]
  - Abnormal uterine bleeding [Not Recovered/Not Resolved]

NARRATIVE: CASE EVENT DATE: 20190401
